FAERS Safety Report 25480357 (Version 1)
Quarter: 2025Q2

REPORT INFORMATION
  Report Type: Spontaneous
  Country: CA (occurrence: CA)
  Receive Date: 20250625
  Receipt Date: 20250625
  Transmission Date: 20250717
  Serious: Yes (Other)
  Sender: PFIZER
  Company Number: CA-PFIZER INC-202500128038

PATIENT
  Age: 78 Year
  Sex: Male

DRUGS (7)
  1. VYNDAMAX [Suspect]
     Active Substance: TAFAMIDIS
     Indication: Cardiac amyloidosis
     Dosage: 61 MG, ONCE A DAY
     Route: 048
     Dates: start: 20240806
  2. DAPAGLIFLOZIN [Concomitant]
     Active Substance: DAPAGLIFLOZIN
  3. SPIRONOLACTONE [Concomitant]
     Active Substance: SPIRONOLACTONE
  4. ENTRESTO [Concomitant]
     Active Substance: SACUBITRIL\VALSARTAN
  5. APIXABAN [Concomitant]
     Active Substance: APIXABAN
  6. CARVEDILOL [Concomitant]
     Active Substance: CARVEDILOL
  7. DIGOXIN [Concomitant]
     Active Substance: DIGOXIN

REACTIONS (1)
  - Carpal tunnel syndrome [Unknown]
